FAERS Safety Report 21513082 (Version 1)
Quarter: 2022Q4

REPORT INFORMATION
  Report Type: Report from Study
  Country: US (occurrence: US)
  Receive Date: 20221027
  Receipt Date: 20221027
  Transmission Date: 20230113
  Serious: Yes (Hospitalization, Congenital Anomaly, Other)
  Sender: FDA-Public Use
  Company Number: US-GENZYME-FABR-11780

PATIENT
  Age: 2 Month
  Sex: Female
  Weight: 6.3 kg

DRUGS (2)
  1. AGALSIDASE BETA [Suspect]
     Active Substance: AGALSIDASE BETA
     Indication: Foetal exposure during pregnancy
  2. AGALSIDASE BETA [Suspect]
     Active Substance: AGALSIDASE BETA
     Indication: Fabry^s disease

REACTIONS (4)
  - Branchial cyst [Recovered/Resolved]
  - Cellulitis [Recovered/Resolved]
  - Abscess neck [Recovered/Resolved]
  - Dermatitis diaper [Not Recovered/Not Resolved]

NARRATIVE: CASE EVENT DATE: 20060629
